FAERS Safety Report 9224431 (Version 1)
Quarter: 2013Q1

REPORT INFORMATION
  Report Type: Spontaneous
  Country: US (occurrence: None)
  Receive Date: 20120910
  Receipt Date: 20120910
  Transmission Date: 20140127
  Serious: No
  Sender: FDA-Public Use
  Company Number: 1207USA001293

PATIENT
  Age: 84 Year
  Sex: Male

DRUGS (3)
  1. ZIOPTAN ( TAFLUPROST) EYE DROPS, SOLUTION 0.0015% [Suspect]
     Indication: GLAUCOMA
     Dosage: ONGOING, ONE DROP BOTH EYES, QD, OPHTHALMIC
     Route: 047
  2. ALPHAGAN ( BRIMONIDINE TARTRATE) [Concomitant]
  3. PILOCARPINE HYDROCHLORIDE ( PILOCARPINE HYDROCHLORIDE) [Concomitant]

REACTIONS (1)
  - Pruritus generalised [None]
